FAERS Safety Report 9119883 (Version 3)
Quarter: 2013Q1

REPORT INFORMATION
  Report Type: Report from Study
  Country: AU (occurrence: AU)
  Receive Date: 20130226
  Receipt Date: 20130308
  Transmission Date: 20140127
  Serious: Yes (Hospitalization)
  Sender: FDA-Public Use
  Company Number: AU-ROCHE-1195301

PATIENT
  Sex: Female
  Weight: 60 kg

DRUGS (27)
  1. TOCILIZUMAB [Suspect]
     Indication: RHEUMATOID ARTHRITIS
     Route: 042
     Dates: start: 20121217
  2. TOCILIZUMAB [Suspect]
     Route: 042
     Dates: start: 20130301
  3. DIAZEPAM [Concomitant]
     Indication: ANXIETY
     Route: 065
  4. ENDEP [Concomitant]
     Indication: FIBROMYALGIA
     Route: 048
  5. MOBIC [Concomitant]
     Indication: PAIN
     Route: 048
     Dates: start: 2011
  6. NEXIUM [Concomitant]
     Indication: GASTROOESOPHAGEAL REFLUX DISEASE
     Route: 048
     Dates: end: 20130225
  7. PANAFCORTELONE [Concomitant]
     Route: 065
  8. PRISTIQ [Concomitant]
     Indication: DEPRESSION
     Route: 048
     Dates: start: 2011
  9. TARGIN [Concomitant]
     Indication: PAIN
     Dosage: 20/10 MG
     Route: 048
     Dates: start: 2011
  10. TARGIN [Concomitant]
     Dosage: 10/5 MG
     Route: 065
     Dates: start: 201211
  11. APO-LEFLUNOMIDE [Concomitant]
     Route: 065
  12. FOLIC ACID [Concomitant]
     Route: 048
     Dates: end: 20130225
  13. PANADEINE FORTE [Concomitant]
     Indication: PAIN
     Route: 048
  14. FRUSEMIDE [Concomitant]
     Indication: FLUID RETENTION
     Route: 048
     Dates: start: 201206, end: 20130225
  15. PREDNISOLONE [Concomitant]
     Indication: RHEUMATOID ARTHRITIS
     Route: 048
     Dates: end: 20130225
  16. PREDNISOLONE [Concomitant]
     Route: 065
     Dates: start: 20130131
  17. METHOTREXATE [Concomitant]
     Indication: RHEUMATOID ARTHRITIS
     Route: 048
     Dates: end: 20130225
  18. NEO-B12 [Concomitant]
     Indication: VITAMIN B12 DEFICIENCY
     Route: 065
     Dates: start: 201207
  19. COLOXYL WITH SENNA [Concomitant]
     Indication: CONSTIPATION
     Route: 048
     Dates: start: 2011
  20. FOSAMAX [Concomitant]
     Indication: OSTEOPOROSIS
     Route: 048
     Dates: start: 2011, end: 20130225
  21. VITAMIN D3 [Concomitant]
     Indication: VITAMIN D DEFICIENCY
     Dosage: 1000 U DAILY
     Route: 048
  22. VENTOLIN [Concomitant]
     Indication: ASTHMA
     Route: 065
     Dates: start: 20130208
  23. FLUCONAZOLE [Concomitant]
     Indication: ORAL CANDIDIASIS
     Route: 048
     Dates: start: 20130223
  24. TEMAZEPAM [Concomitant]
     Indication: INSOMNIA
     Route: 048
     Dates: start: 2011
  25. ELEUPHRAT [Concomitant]
     Indication: LIP ULCERATION
     Route: 065
     Dates: start: 20130206
  26. SERETIDE [Concomitant]
     Route: 065
  27. CLEXANE [Concomitant]
     Indication: THROMBOSIS PROPHYLAXIS
     Route: 058
     Dates: start: 20130225, end: 20130302

REACTIONS (2)
  - Chronic obstructive pulmonary disease [Recovered/Resolved]
  - Oral candidiasis [Recovered/Resolved]
